FAERS Safety Report 6425003-7 (Version None)
Quarter: 2009Q4

REPORT INFORMATION
  Report Type: 
  Country: None (occurrence: None)
  Receive Date: 20091102
  Receipt Date: 20091102
  Transmission Date: 20100525
  Serious: Yes (Hospitalization)
  Sender: FDA-Public Use
  Company Number: None

PATIENT
  Age: 62 Year
  Sex: Female

DRUGS (1)
  1. INSULIN [Suspect]
     Indication: DIABETES MELLITUS
     Dosage: 25 UNITS EVERY DAY SQ
     Route: 058
     Dates: start: 20081001

REACTIONS (6)
  - CONFUSIONAL STATE [None]
  - HYPOGLYCAEMIA [None]
  - HYPOTHERMIA [None]
  - TONGUE DISORDER [None]
  - TREMOR [None]
  - UNRESPONSIVE TO STIMULI [None]
